FAERS Safety Report 17011934 (Version 1)
Quarter: 2019Q4

REPORT INFORMATION
  Report Type: Spontaneous
  Country: GB (occurrence: GB)
  Receive Date: 20191108
  Receipt Date: 20191108
  Transmission Date: 20200122
  Serious: Yes (Hospitalization, Other)
  Sender: FDA-Public Use
  Company Number: GB-NAPPMUNDI-GBR-2019-0072301

PATIENT
  Age: 5 Year
  Sex: Male

DRUGS (2)
  1. THEOPHYLLINE [Suspect]
     Active Substance: THEOPHYLLINE ANHYDROUS
     Indication: ASTHMA
     Dosage: 250 MG ORALLY IN THE MORNING AND AT NIGHT; 185 MG AT MIDDAY
     Route: 048
  2. THEOPHYLLINE [Suspect]
     Active Substance: THEOPHYLLINE ANHYDROUS
     Indication: ASTHMA
     Dosage: 300 MG AT 8 A.M. AND 200 MG AT BEDTIME
     Route: 048

REACTIONS (7)
  - Disorientation [Recovered/Resolved]
  - Eating disorder [Recovered/Resolved]
  - Acute psychosis [Recovered/Resolved]
  - Thinking abnormal [Recovered/Resolved]
  - Toxicity to various agents [Recovering/Resolving]
  - Logorrhoea [Recovered/Resolved]
  - Insomnia [Recovered/Resolved]
